FAERS Safety Report 7224203-6 (Version None)
Quarter: 2011Q1

REPORT INFORMATION
  Report Type: 
  Country: None (occurrence: None)
  Receive Date: 20110106
  Receipt Date: 20110106
  Transmission Date: 20110831
  Serious: Yes (Other)
  Sender: FDA-Public Use
  Company Number: None

PATIENT
  Age: 47 Year
  Sex: Female
  Weight: 68.0396 kg

DRUGS (2)
  1. LEVAQUIN [Suspect]
     Indication: BRONCHITIS
     Dosage: 500 MG ONCE PER DAY PO
     Route: 048
     Dates: start: 20101118, end: 20101120
  2. LEVAQUIN [Suspect]
     Indication: SINUS DISORDER
     Dosage: 500 MG ONCE PER DAY PO
     Route: 048
     Dates: start: 20101118, end: 20101120

REACTIONS (1)
  - TENDON PAIN [None]
